FAERS Safety Report 8284871-7 (Version None)
Quarter: 2012Q2

REPORT INFORMATION
  Report Type: 
  Country: None (occurrence: None)
  Receive Date: 20120413
  Receipt Date: 20110815
  Transmission Date: 20120825
  Serious: No
  Sender: FDA-Public Use
  Company Number: US-ASTRAZENECA-2011SE49027

PATIENT
  Age: 53 Year

DRUGS (12)
  1. ALPRAZOLAM [Concomitant]
     Route: 048
     Dates: start: 20060705
  2. HYDROCHLOROTHIAZIDE [Concomitant]
     Route: 048
     Dates: start: 20080124
  3. DICLOFENAC SODIUM [Concomitant]
     Route: 048
     Dates: start: 20110408, end: 20110607
  4. FEXOFENADINE HCL [Concomitant]
     Route: 048
     Dates: start: 20070907
  5. GABAPENTIN [Concomitant]
     Route: 048
     Dates: start: 20060705
  6. HYDROCODONE BITARTRATE AND ACETAMINOPHEN [Concomitant]
     Dosage: 5-500 MG, ONE TABLET EVERY 4-6 HOURS AS NEEDED
     Route: 048
     Dates: start: 20060705
  7. MECLIZINE HCL [Concomitant]
     Route: 048
     Dates: start: 20060705
  8. LISINOPRIL [Suspect]
     Route: 048
     Dates: start: 20061107
  9. NEXIUM [Suspect]
     Route: 048
     Dates: start: 20070206
  10. CRESTOR [Suspect]
     Route: 048
     Dates: start: 20060705
  11. ANDROGEL [Concomitant]
     Dosage: APPLY DAILY AS DIRECTED
     Dates: start: 20090505
  12. ASPIRIN [Concomitant]
     Route: 048
     Dates: start: 20060705

REACTIONS (1)
  - DIABETES MELLITUS [None]
